FAERS Safety Report 5012263-2 (Version None)
Quarter: 2006Q2

REPORT INFORMATION
  Report Type: 
  Country: None (occurrence: None)
  Receive Date: 20060404
  Receipt Date: 20051230
  Transmission Date: 20061013
  Serious: No
  Sender: FDA-Public Use
  Company Number: US200601000197

PATIENT
  Age: 55 Year
  Sex: Female

DRUGS (1)
  1. CYMBALTA [Suspect]
     Indication: NECK PAIN
     Dates: start: 20041101, end: 20050101

REACTIONS (6)
  - DIZZINESS [None]
  - FATIGUE [None]
  - INSOMNIA [None]
  - IRRITABILITY [None]
  - MEMORY IMPAIRMENT [None]
  - MUSCULAR WEAKNESS [None]
